FAERS Safety Report 9010452 (Version 1)
Quarter: 2013Q1

REPORT INFORMATION
  Report Type: Spontaneous
  Country: CH (occurrence: CH)
  Receive Date: 20130109
  Receipt Date: 20130109
  Transmission Date: 20140127
  Serious: Yes (Hospitalization)
  Sender: FDA-Public Use
  Company Number: CH-ROCHE-1176813

PATIENT
  Age: 85 Year
  Sex: Male

DRUGS (9)
  1. MARCOUMAR [Suspect]
     Indication: ATRIAL FIBRILLATION
     Dosage: AS REQUIRED
     Route: 048
     Dates: end: 20121128
  2. TOREM [Interacting]
     Indication: HYPERTENSION
     Route: 048
     Dates: start: 2006, end: 20121128
  3. TRIATEC [Concomitant]
     Route: 065
     Dates: end: 20121204
  4. BELOC [Concomitant]
     Route: 065
  5. ASPIRIN CARDIO [Concomitant]
     Indication: ARTERIOSCLEROSIS
     Route: 048
  6. METOLAZON [Concomitant]
     Indication: HYPERTENSION
     Route: 048
     Dates: end: 20121127
  7. SORTIS [Concomitant]
     Route: 048
  8. PANTOZOL [Concomitant]
     Route: 048
  9. PRADIF [Concomitant]
     Route: 048

REACTIONS (6)
  - Hyperkalaemia [Recovered/Resolved]
  - Gastrointestinal haemorrhage [Recovered/Resolved]
  - Melaena [Recovered/Resolved]
  - Haemorrhagic anaemia [Recovering/Resolving]
  - Renal failure chronic [Recovering/Resolving]
  - Drug interaction [Recovered/Resolved]
